FAERS Safety Report 5499235-9 (Version None)
Quarter: 2007Q4

REPORT INFORMATION
  Report Type: 
  Country: None (occurrence: None)
  Receive Date: 20071026
  Receipt Date: 20071019
  Transmission Date: 20080405
  Serious: Yes (Other)
  Sender: FDA-Public Use
  Company Number: CA-JNJFOC-20071005533

PATIENT
  Sex: Female

DRUGS (12)
  1. RAZADYNE ER [Suspect]
     Indication: DRUG USE FOR UNKNOWN INDICATION
  2. SYNTHROID [Concomitant]
  3. TYLENOL (CAPLET) [Concomitant]
  4. PAXIL [Concomitant]
  5. NEURONTIN [Concomitant]
  6. WELLBUTRIN [Concomitant]
  7. LASIX [Concomitant]
  8. PENTOLOC [Concomitant]
  9. LIPITOR [Concomitant]
  10. MOGADON [Concomitant]
  11. OXYCONTIN [Concomitant]
  12. DIOVAN [Concomitant]

REACTIONS (1)
  - ERYTHEMA MULTIFORME [None]
